FAERS Safety Report 21113569 (Version 1)
Quarter: 2022Q3

REPORT INFORMATION
  Report Type: Spontaneous
  Country: US (occurrence: None)
  Receive Date: 20220721
  Receipt Date: 20220721
  Transmission Date: 20221027
  Serious: No
  Sender: FDA-Public Use
  Company Number: None

PATIENT
  Age: 79 Year
  Sex: Male
  Weight: 74.7 kg

DRUGS (8)
  1. MAGNESIUM CITRATE LEMON [Suspect]
     Active Substance: MAGNESIUM CITRATE
     Dates: start: 20211114, end: 20211115
  2. TAMSULOSIN [Concomitant]
     Active Substance: TAMSULOSIN
  3. PROSCAR [Concomitant]
     Active Substance: FINASTERIDE
  4. SIMVASTATIN [Concomitant]
     Active Substance: SIMVASTATIN
  5. OMEPRAZOLE [Concomitant]
     Active Substance: OMEPRAZOLE
  6. COLESTIPOL [Concomitant]
     Active Substance: COLESTIPOL
  7. AMLODIPINE [Concomitant]
     Active Substance: AMLODIPINE BESYLATE
  8. VITAMIN D [Concomitant]
     Active Substance: VITAMIN D NOS

REACTIONS (2)
  - Abdominal pain upper [None]
  - Product contamination [None]

NARRATIVE: CASE EVENT DATE: 20211115
